FAERS Safety Report 23037427 (Version 1)
Quarter: 2023Q4

REPORT INFORMATION
  Report Type: Spontaneous
  Country: US (occurrence: US)
  Receive Date: 20231006
  Receipt Date: 20231006
  Transmission Date: 20240110
  Serious: Yes (Hospitalization, Other)
  Sender: FDA-Public Use
  Company Number: US-MLMSERVICE-20230918-4550207-1

PATIENT

DRUGS (1)
  1. ACETAMINOPHEN [Suspect]
     Active Substance: ACETAMINOPHEN
     Indication: Product used for unknown indication
     Dosage: 10000 MILLIGRAM, SINGLE
     Route: 065

REACTIONS (4)
  - Hepatic failure [Recovering/Resolving]
  - Hyperammonaemia [Recovering/Resolving]
  - Renal failure [Recovered/Resolved]
  - Intentional overdose [Recovering/Resolving]
